FAERS Safety Report 7889368 (Version 3)
Quarter: 2012Q4

REPORT INFORMATION
  Report Type: 
  Country: US (occurrence: US)
  Receive Date: 20110407
  Receipt Date: 20121108
  Transmission Date: 20130627
  Serious: Yes (Disabling, Other)
  Sender: FDA-Public Use
  Company Number: US-BAYER-2011-021749

PATIENT
  Age: 78 Year
  Sex: Male

DRUGS (2)
  1. NEXAVAR [Suspect]
     Indication: RENAL CELL CARCINOMA
     Dosage: 400 mg, BID
     Route: 048
     Dates: start: 20110225, end: 20110307
  2. NEXAVAR [Suspect]
     Indication: RENAL CELL CARCINOMA
     Dosage: 200 mg, BID
     Dates: start: 20110401

REACTIONS (5)
  - Oedema peripheral [Recovering/Resolving]
  - Abasia [Recovering/Resolving]
  - Skin exfoliation [Recovering/Resolving]
  - Blister [Not Recovered/Not Resolved]
  - Renal cancer [None]
